FAERS Safety Report 7964016-0 (Version None)
Quarter: 2011Q4

REPORT INFORMATION
  Report Type: 
  Country: None (occurrence: None)
  Receive Date: 20111208
  Receipt Date: 20111122
  Transmission Date: 20120403
  Serious: Yes (Hospitalization, Other)
  Sender: FDA-Public Use
  Company Number: US-BAYER-2011-050118

PATIENT
  Age: 33 Year
  Sex: Female
  Weight: 90.703 kg

DRUGS (8)
  1. YASMIN [Suspect]
     Indication: ACNE
     Dosage: UNK
     Dates: start: 20040401, end: 20041101
  2. DROSPIRENONE AND ETHINYL ESTRADIOL [Suspect]
     Indication: ACNE
     Dosage: UNK
     Dates: start: 20080901, end: 20081001
  3. M.V.I. [Concomitant]
  4. YASMIN [Suspect]
     Indication: CONTRACEPTION
  5. DROSPIRENONE AND ETHINYL ESTRADIOL [Suspect]
     Indication: CONTRACEPTION
  6. CELEXA [Concomitant]
     Indication: DEPRESSION
     Dosage: 40 MG, HS
     Route: 048
     Dates: start: 19980101
  7. PRILOSEC [Concomitant]
     Dosage: 20 MG, QD
     Route: 048
  8. VICODIN [Concomitant]

REACTIONS (5)
  - GALLBLADDER DISORDER [None]
  - CHOLECYSTITIS ACUTE [None]
  - PAIN [None]
  - ABORTION SPONTANEOUS [None]
  - BLIGHTED OVUM [None]
